FAERS Safety Report 9973384 (Version 1)
Quarter: 2014Q1

REPORT INFORMATION
  Report Type: Spontaneous
  Country: US (occurrence: US)
  Receive Date: 20140306
  Receipt Date: 20140306
  Transmission Date: 20141002
  Serious: Yes (Hospitalization)
  Sender: FDA-Public Use
  Company Number: US-JNJFOC-20140300399

PATIENT
  Age: 6 Decade
  Sex: Male

DRUGS (3)
  1. XARELTO [Suspect]
     Indication: THROMBOSIS PROPHYLAXIS
     Route: 048
  2. XARELTO [Suspect]
     Indication: HIP SURGERY
     Route: 048
  3. TRANEXAMIC ACID [Concomitant]
     Indication: HIP ARTHROPLASTY
     Route: 065

REACTIONS (2)
  - Deep vein thrombosis [Unknown]
  - Pyrexia [Unknown]
